FAERS Safety Report 8240112-8 (Version None)
Quarter: 2012Q1

REPORT INFORMATION
  Report Type: 
  Country: None (occurrence: None)
  Receive Date: 20120328
  Receipt Date: 20120322
  Transmission Date: 20120608
  Serious: Yes (Other)
  Sender: FDA-Public Use
  Company Number: US-BAYER-2012-028720

PATIENT
  Age: 39 Year
  Sex: Male
  Weight: 84 kg

DRUGS (3)
  1. ALEVE (CAPLET) [Suspect]
     Dosage: UNK
     Route: 048
     Dates: start: 20120321
  2. CELEXA [Concomitant]
  3. INSULIN [Concomitant]

REACTIONS (6)
  - SWELLING FACE [None]
  - HYPERSENSITIVITY [None]
  - URTICARIA [None]
  - PRURITUS [None]
  - LIP SWELLING [None]
  - HYPERHIDROSIS [None]
